FAERS Safety Report 8357649-3 (Version None)
Quarter: 2012Q2

REPORT INFORMATION
  Report Type: 
  Country: None (occurrence: None)
  Receive Date: 20120514
  Receipt Date: 20120510
  Transmission Date: 20120825
  Serious: Yes (Life-Threatening, Other)
  Sender: FDA-Public Use
  Company Number: US-BAYER-2012-046695

PATIENT
  Age: 65 Year
  Sex: Female
  Weight: 81.633 kg

DRUGS (3)
  1. NAPROXEN SODIUM [Suspect]
     Dosage: 1 DF, BID
     Route: 048
     Dates: start: 20110101
  2. NAPROXEN SODIUM [Suspect]
     Indication: BACK PAIN
     Dosage: UNK
     Route: 048
     Dates: start: 20080101
  3. TOPROL-XL [Concomitant]

REACTIONS (2)
  - MYOCARDIAL INFARCTION [None]
  - CARDIAC FIBRILLATION [None]
